FAERS Safety Report 4268922-2 (Version None)
Quarter: 2004Q1

REPORT INFORMATION
  Report Type: 
  Country: None (occurrence: None)
  Receive Date: 20040109
  Receipt Date: 20031226
  Transmission Date: 20041129
  Serious: Yes (Hospitalization)
  Sender: FDA-Public Use
  Company Number: RENA-10729

PATIENT
  Age: 30 Year
  Sex: Male

DRUGS (8)
  1. PHOSBLOCK - 250 MG TABLET [Suspect]
     Indication: HYPERPHOSPHATAEMIA
     Dosage: 0.75 G QD PO
     Route: 048
     Dates: start: 20030822, end: 20030915
  2. ALLOPURINOL [Concomitant]
  3. CALCIUM CARBONATE [Concomitant]
  4. CARVEDIOL [Concomitant]
  5. CALCITRIOL [Concomitant]
  6. AMLODIPINE BESYLATE [Concomitant]
  7. DOXAZOSIN MESYLATE [Concomitant]
  8. AZULENE SULFONATE SODIUM [Concomitant]

REACTIONS (9)
  - ANAEMIA [None]
  - BLOOD LACTATE DEHYDROGENASE INCREASED [None]
  - BLOOD PRESSURE INCREASED [None]
  - HAEMOLYTIC URAEMIC SYNDROME [None]
  - HAEMORRHAGE [None]
  - HAEMORRHAGE SUBCUTANEOUS [None]
  - MALAISE [None]
  - PLATELET COUNT DECREASED [None]
  - WHITE BLOOD CELL COUNT INCREASED [None]
